FAERS Safety Report 4626353-7 (Version None)
Quarter: 2005Q2

REPORT INFORMATION
  Report Type: 
  Country: None (occurrence: None)
  Receive Date: 20050404
  Receipt Date: 20050228
  Transmission Date: 20051028
  Serious: Yes (Hospitalization)
  Sender: FDA-Public Use
  Company Number: JP-GLAXOSMITHKLINE-B0373459A

PATIENT
  Age: 14 Year
  Sex: Male
  Weight: 52 kg

DRUGS (3)
  1. AUGMENTIN '125' [Suspect]
     Indication: UPPER RESPIRATORY TRACT INFECTION
     Dosage: 375MG THREE TIMES PER DAY
     Route: 048
     Dates: start: 20050220, end: 20050221
  2. RIKAMYCIN [Suspect]
     Indication: UPPER RESPIRATORY TRACT INFECTION
     Route: 048
     Dates: start: 20050219, end: 20050220
  3. CALONAL [Suspect]
     Route: 048
     Dates: start: 20050219, end: 20050221

REACTIONS (6)
  - ENANTHEMA [None]
  - PIGMENTATION DISORDER [None]
  - PNEUMONIA MYCOPLASMAL [None]
  - PYREXIA [None]
  - RASH [None]
  - STEVENS-JOHNSON SYNDROME [None]
